FAERS Safety Report 7573195-9 (Version None)
Quarter: 2011Q2

REPORT INFORMATION
  Report Type: 
  Country: None (occurrence: None)
  Receive Date: 20110627
  Receipt Date: 20110609
  Transmission Date: 20111010
  Serious: No
  Sender: FDA-Public Use
  Company Number: US-B.I. PHARMACEUTICALS,INC./RIDGEFIELD-2011-BP-15043BP

PATIENT
  Age: 63 Year
  Sex: Female

DRUGS (4)
  1. LEVOTHYROXINE SODIUM [Concomitant]
     Indication: HYPOTHYROIDISM
     Dosage: 0.75 MG
     Dates: start: 20050101
  2. PRADAXA [Suspect]
     Indication: ATRIAL FIBRILLATION
     Dosage: 150 MG
     Route: 048
     Dates: start: 20110608, end: 20110609
  3. METFORMIN HCL [Concomitant]
     Indication: DIABETES MELLITUS
     Dosage: 1000 MG
     Dates: start: 20090101
  4. LOSARTAN POTASSIUM [Concomitant]
     Indication: DIABETES MELLITUS
     Dosage: 25 MG
     Dates: start: 20110301

REACTIONS (4)
  - DYSPEPSIA [None]
  - PRURITUS [None]
  - EYE DISORDER [None]
  - RHINORRHOEA [None]
